FAERS Safety Report 7565362-5 (Version None)
Quarter: 2011Q2

REPORT INFORMATION
  Report Type: 
  Country: None (occurrence: None)
  Receive Date: 20110623
  Receipt Date: 20110617
  Transmission Date: 20111010
  Serious: No
  Sender: FDA-Public Use
  Company Number: US-BIOGENIDEC-2010BI035436

PATIENT
  Sex: Female

DRUGS (2)
  1. TYSABRI [Suspect]
     Indication: MULTIPLE SCLEROSIS
     Route: 042
     Dates: start: 20100317
  2. BACLOFEN [Concomitant]
     Indication: MUSCLE SPASTICITY

REACTIONS (14)
  - AMNESIA [None]
  - MEMORY IMPAIRMENT [None]
  - DISTURBANCE IN ATTENTION [None]
  - MUSCLE SPASTICITY [None]
  - FIBROMYALGIA [None]
  - STRESS [None]
  - BRADYPHRENIA [None]
  - BALANCE DISORDER [None]
  - PAIN [None]
  - APHASIA [None]
  - COGNITIVE DISORDER [None]
  - INSOMNIA [None]
  - MUSCLE MASS [None]
  - DRUG INEFFECTIVE [None]
